FAERS Safety Report 6715588-5 (Version None)
Quarter: 2010Q2

REPORT INFORMATION
  Report Type: 
  Country: None (occurrence: None)
  Receive Date: 20100506
  Receipt Date: 20100506
  Transmission Date: 20101027
  Serious: Yes (Hospitalization, Other)
  Sender: FDA-Public Use
  Company Number: None

PATIENT
  Age: 69 Year
  Sex: Male
  Weight: 101 kg

DRUGS (9)
  1. HEPARIN [Suspect]
     Indication: THROMBOSIS PROPHYLAXIS
     Dosage: 27,000 UNITS ONCE IV
     Route: 042
     Dates: start: 20100208
  2. ASPIRIN [Concomitant]
  3. CEFAZOLIN [Concomitant]
  4. DOCUSATE [Concomitant]
  5. ASPART [Concomitant]
  6. METOPROLOL SUCCINATE [Concomitant]
  7. RANITIDINE [Concomitant]
  8. SENNA [Concomitant]
  9. VANCOMYCIN [Concomitant]

REACTIONS (5)
  - CATHETER SITE HAEMORRHAGE [None]
  - HAEMATOCRIT DECREASED [None]
  - HAEMOGLOBIN DECREASED [None]
  - INCISION SITE HAEMORRHAGE [None]
  - PROTHROMBIN TIME PROLONGED [None]
